FAERS Safety Report 25527012 (Version 1)
Quarter: 2025Q3

REPORT INFORMATION
  Report Type: Spontaneous
  Country: US (occurrence: US)
  Receive Date: 20250708
  Receipt Date: 20250708
  Transmission Date: 20251021
  Serious: No
  Sender: ABBVIE
  Company Number: US-ABBVIE-6349944

PATIENT
  Age: 68 Year
  Sex: Male

DRUGS (4)
  1. RESTASIS [Suspect]
     Active Substance: CYCLOSPORINE
     Indication: Dry eye
     Route: 047
     Dates: start: 2024, end: 202506
  2. RESTASIS [Suspect]
     Active Substance: CYCLOSPORINE
     Route: 047
     Dates: start: 202506
  3. LATANOPROST [Concomitant]
     Active Substance: LATANOPROST
     Indication: Ocular discomfort
     Route: 047
  4. BRIMONIDINE [Concomitant]
     Active Substance: BRIMONIDINE TARTRATE
     Indication: Ocular discomfort
     Route: 047

REACTIONS (3)
  - Eye irritation [Recovered/Resolved]
  - Eye irritation [Recovered/Resolved]
  - Product quality issue [Not Recovered/Not Resolved]

NARRATIVE: CASE EVENT DATE: 20250601
